FAERS Safety Report 21880141 (Version 1)
Quarter: 2023Q1

REPORT INFORMATION
  Report Type: Spontaneous
  Country: CN (occurrence: CN)
  Receive Date: 20230118
  Receipt Date: 20230118
  Transmission Date: 20230417
  Serious: Yes (Other)
  Sender: FDA-Public Use
  Company Number: CN-AMERICAN REGENT INC-2023000116

PATIENT
  Age: 27 Year
  Sex: Female
  Weight: 87 kg

DRUGS (3)
  1. VENOFER [Suspect]
     Active Substance: IRON SUCROSE
     Indication: Anaemia of pregnancy
     Dosage: 1 IN 1 D SINGLE (PRESCRIBED 200 MG)
     Dates: start: 20221225, end: 20221225
  2. VENOFER [Suspect]
     Active Substance: IRON SUCROSE
     Indication: Anaemia
  3. VENOFER [Suspect]
     Active Substance: IRON SUCROSE
     Indication: Postpartum haemorrhage

REACTIONS (4)
  - Mania [Recovered/Resolved]
  - Depressed level of consciousness [Recovered/Resolved]
  - Chest discomfort [Recovered/Resolved]
  - Headache [Recovered/Resolved]

NARRATIVE: CASE EVENT DATE: 20221225
